FAERS Safety Report 11347791 (Version 1)
Quarter: 2015Q3

REPORT INFORMATION
  Report Type: Spontaneous
  Country: US (occurrence: US)
  Receive Date: 20150803
  Receipt Date: 20150803
  Transmission Date: 20151125
  Serious: No
  Sender: FDA-Public Use
  Company Number: US-ELI_LILLY_AND_COMPANY-US201110002910

PATIENT
  Age: 78 Year
  Sex: Male

DRUGS (1)
  1. ZYPREXA [Suspect]
     Active Substance: OLANZAPINE
     Indication: DEMENTIA
     Dosage: 5 MG, UNK
     Dates: start: 20110918

REACTIONS (3)
  - Weight increased [Unknown]
  - Diabetes mellitus inadequate control [Unknown]
  - Off label use [Not Recovered/Not Resolved]
